FAERS Safety Report 18234337 (Version 1)
Quarter: 2020Q3

REPORT INFORMATION
  Report Type: Spontaneous
  Country: CA (occurrence: CA)
  Receive Date: 20200904
  Receipt Date: 20200904
  Transmission Date: 20201103
  Serious: Yes (Other)
  Sender: FDA-Public Use
  Company Number: CA-PFM-2020-17974

PATIENT

DRUGS (2)
  1. HEMANGIOL [Suspect]
     Active Substance: PROPRANOLOL HYDROCHLORIDE
     Indication: HAEMANGIOMA
     Dosage: 13.8 MG, BID (2/DAY)
     Route: 065
     Dates: start: 20200724, end: 20200814
  2. HEMANGIOL [Suspect]
     Active Substance: PROPRANOLOL HYDROCHLORIDE
     Indication: OFF LABEL USE

REACTIONS (8)
  - Product administered to patient of inappropriate age [Unknown]
  - Skin discolouration [Unknown]
  - Pallor [Unknown]
  - Confusional state [Unknown]
  - Loss of consciousness [Recovered/Resolved]
  - Crying [Unknown]
  - Eye movement disorder [Recovered/Resolved]
  - Off label use [Unknown]
